FAERS Safety Report 10178375 (Version 1)
Quarter: 2014Q2

REPORT INFORMATION
  Report Type: Spontaneous
  Country: GB (occurrence: GB)
  Receive Date: 20140519
  Receipt Date: 20140519
  Transmission Date: 20141212
  Serious: Yes (Other)
  Sender: FDA-Public Use
  Company Number: GB-RANBAXY-2014RR-81306

PATIENT
  Age: 84 Year
  Sex: Male

DRUGS (1)
  1. CO-CODAMOL [Suspect]
     Indication: PRODUCT USED FOR UNKNOWN INDICATION
     Dosage: 16 DF, ONCE ACCIDENTALLY
     Route: 065

REACTIONS (3)
  - Atrial fibrillation [Unknown]
  - Accidental overdose [Unknown]
  - Somnolence [Unknown]
